FAERS Safety Report 5040129-0 (Version None)
Quarter: 2006Q2

REPORT INFORMATION
  Report Type: 
  Country: None (occurrence: None)
  Receive Date: 20060601
  Receipt Date: 20060116
  Transmission Date: 20061013
  Serious: No
  Sender: FDA-Public Use
  Company Number: 2006PV007034

PATIENT
  Age: 61 Year
  Sex: Male
  Weight: 145.151 kg

DRUGS (4)
  1. BYETTA [Suspect]
     Indication: DIABETES MELLITUS NON-INSULIN-DEPENDENT
     Dosage: SEE IMAGE
     Route: 058
     Dates: start: 20051120, end: 20051219
  2. BYETTA [Suspect]
     Indication: DIABETES MELLITUS NON-INSULIN-DEPENDENT
     Dosage: SEE IMAGE
     Route: 058
     Dates: start: 20051220
  3. AMARYL [Concomitant]
  4. METFORMIN [Concomitant]

REACTIONS (4)
  - BLOOD GLUCOSE INCREASED [None]
  - INFLUENZA LIKE ILLNESS [None]
  - LOWER RESPIRATORY TRACT INFECTION [None]
  - NASOPHARYNGITIS [None]
